FAERS Safety Report 7385383-5 (Version None)
Quarter: 2011Q1

REPORT INFORMATION
  Report Type: 
  Country: None (occurrence: None)
  Receive Date: 20110330
  Receipt Date: 20110124
  Transmission Date: 20110831
  Serious: No
  Sender: FDA-Public Use
  Company Number: US-MYLANLABS-2010S1023483

PATIENT
  Age: 67 Year
  Sex: Female

DRUGS (9)
  1. EMSAM [Suspect]
     Route: 062
     Dates: start: 20100501
  2. SEROQUEL [Concomitant]
     Dosage: PATIENT REPORTEDLY TAKES 25 TO 75 MG AS NEEDED
  3. EMSAM [Suspect]
     Route: 062
     Dates: start: 20100501
  4. LITHIUM [Concomitant]
     Indication: BIPOLAR DISORDER
  5. EMSAM [Suspect]
     Indication: BIPOLAR DISORDER
     Route: 062
     Dates: end: 20110101
  6. EMSAM [Suspect]
     Route: 062
  7. EMSAM [Suspect]
     Indication: DEPRESSION
     Route: 062
     Dates: end: 20110101
  8. SEROQUEL [Concomitant]
     Indication: BIPOLAR DISORDER
     Dosage: PATIENT REPORTEDLY TAKES 25 TO 75 MG AS NEEDED
  9. EMSAM [Suspect]
     Route: 062

REACTIONS (9)
  - FUNGAL SKIN INFECTION [None]
  - APPLICATION SITE PAIN [None]
  - APPLICATION SITE ERYTHEMA [None]
  - WOUND SECRETION [None]
  - APPLICATION SITE BURN [None]
  - APPLICATION SITE VESICLES [None]
  - APPLICATION SITE RASH [None]
  - INSOMNIA [None]
  - HYPERHIDROSIS [None]
